FAERS Safety Report 14765495 (Version 12)
Quarter: 2020Q4

REPORT INFORMATION
  Report Type: Report from Study
  Country: JP (occurrence: JP)
  Receive Date: 20180416
  Receipt Date: 20201023
  Transmission Date: 20210113
  Serious: Yes (Death, Life-Threatening, Hospitalization)
  Sender: FDA-Public Use
  Company Number: JP-EISAI MEDICAL RESEARCH-EC-2018-038070

PATIENT
  Age: 80 Year
  Sex: Male
  Weight: 51 kg

DRUGS (20)
  1. LIPIDIL [Concomitant]
     Active Substance: FENOFIBRATE
  2. FENTANYL. [Concomitant]
     Active Substance: FENTANYL
  3. SOLU-CORTEF [Concomitant]
     Active Substance: HYDROCORTISONE SODIUM SUCCINATE
  4. GLUCOSE [Concomitant]
     Active Substance: DEXTROSE
  5. LACTEC [Concomitant]
     Active Substance: CALCIUM CHLORIDE ANHYDROUS\POTASSIUM CHLORIDE\SODIUM CHLORIDE\SODIUM LACTATE
  6. OXYCONTIN [Suspect]
     Active Substance: OXYCODONE HYDROCHLORIDE
     Indication: CANCER PAIN
     Route: 048
     Dates: start: 20180405
  7. MAGNESIUM OXIDE. [Concomitant]
     Active Substance: MAGNESIUM OXIDE
  8. VOLTAREN [Concomitant]
     Active Substance: DICLOFENAC SODIUM
  9. BFLUID [Concomitant]
     Active Substance: AMINO ACIDS\DEXTROSE\ELECTROLYTES NOS\VITAMINS
  10. FUROSEMIDE. [Concomitant]
     Active Substance: FUROSEMIDE
  11. LENVATINIB [Suspect]
     Active Substance: LENVATINIB
     Indication: RENAL CELL CARCINOMA
     Route: 048
     Dates: start: 20180330, end: 20180411
  12. REBAMIPIDE [Concomitant]
     Active Substance: REBAMIPIDE
  13. REPLAS1 [Concomitant]
  14. ALLOPURINOL. [Concomitant]
     Active Substance: ALLOPURINOL
  15. OXINORM (OXYCODONE HYDROCHLORIDE) [Suspect]
     Active Substance: OXYCODONE HYDROCHLORIDE
     Indication: CANCER PAIN
     Route: 048
     Dates: start: 20180405
  16. EVEROLIMUS. [Suspect]
     Active Substance: EVEROLIMUS
     Indication: RENAL CELL CARCINOMA
     Route: 048
     Dates: start: 20180330, end: 20180411
  17. CONIEL [Concomitant]
     Active Substance: BENIDIPINE HYDROCHLORIDE
  18. ROSUVASTATIN. [Concomitant]
     Active Substance: ROSUVASTATIN
  19. RENIVACE [Concomitant]
     Active Substance: ENALAPRIL
  20. TAZOPIPE [Concomitant]
     Active Substance: PIPERACILLIN SODIUM\TAZOBACTAM SODIUM

REACTIONS (3)
  - Gastrointestinal haemorrhage [Recovering/Resolving]
  - Large intestine perforation [Not Recovered/Not Resolved]
  - Respiratory failure [Fatal]

NARRATIVE: CASE EVENT DATE: 20180412
